FAERS Safety Report 12313255 (Version 1)
Quarter: 2016Q2

REPORT INFORMATION
  Report Type: Spontaneous
  Country: US (occurrence: US)
  Receive Date: 20160428
  Receipt Date: 20160428
  Transmission Date: 20160815
  Serious: No
  Sender: FDA-Public Use
  Company Number: US-PFIZER INC-2016188641

PATIENT
  Age: 49 Year
  Sex: Female

DRUGS (5)
  1. TOPIRAMATE. [Suspect]
     Active Substance: TOPIRAMATE
  2. MORPHINE SULFATE. [Suspect]
     Active Substance: MORPHINE SULFATE
  3. NAPROXEN SODIUM. [Suspect]
     Active Substance: NAPROXEN SODIUM
  4. DIFLUCAN [Suspect]
     Active Substance: FLUCONAZOLE
  5. CELECOXIB. [Suspect]
     Active Substance: CELECOXIB

REACTIONS (1)
  - Drug hypersensitivity [Unknown]
